FAERS Safety Report 11254416 (Version 1)
Quarter: 2015Q3

REPORT INFORMATION
  Report Type: Spontaneous
  Country: US (occurrence: None)
  Receive Date: 20150708
  Receipt Date: 20150708
  Transmission Date: 20151125
  Serious: Yes (Life-Threatening, Hospitalization)
  Sender: FDA-Public Use
  Company Number: None

PATIENT
  Age: 36 Year
  Sex: Female
  Weight: 74.84 kg

DRUGS (4)
  1. NECON [Suspect]
     Active Substance: ETHINYL ESTRADIOL\NORETHINDRONE
     Indication: OVARIAN CYST
     Dosage: 1/35 1 ONE, ONE PER DAY   BY MOUTH
     Route: 048
     Dates: start: 20130619, end: 201307
  2. PROAIR HFA [Concomitant]
     Active Substance: ALBUTEROL SULFATE
  3. SERTRALINE [Concomitant]
     Active Substance: SERTRALINE HYDROCHLORIDE
  4. ALPRAZOLAM. [Concomitant]
     Active Substance: ALPRAZOLAM

REACTIONS (2)
  - Female genital tract fistula [None]
  - Pulmonary thrombosis [None]

NARRATIVE: CASE EVENT DATE: 20130619
